FAERS Safety Report 26180472 (Version 1)
Quarter: 2025Q4

REPORT INFORMATION
  Report Type: Spontaneous
  Country: CO (occurrence: CO)
  Receive Date: 20251219
  Receipt Date: 20251219
  Transmission Date: 20260118
  Serious: Yes (Death, Hospitalization, Other)
  Sender: LUNDBECK
  Company Number: CO-SA-SAC20230118000156

PATIENT
  Age: 9 Year
  Sex: Male
  Weight: 19 kg

DRUGS (18)
  1. CLOBAZAM [Suspect]
     Active Substance: CLOBAZAM
     Indication: Epilepsy
     Dosage: 10 MILLIGRAM
     Route: 048
  2. IMIGLUCERASE [Suspect]
     Active Substance: IMIGLUCERASE
     Indication: Gaucher^s disease
     Dosage: 6 DF (VIALS), Q15D
     Route: 042
     Dates: start: 20150118
  3. CLOBAZAM [Concomitant]
     Active Substance: CLOBAZAM
     Indication: Seizure
     Dosage: 10 MG IN THE MORNING, 5 MG IN THE AFTERNOON AND 10 MG IN THE EVENING, TID
     Dates: end: 20240616
  4. CLOBAZAM [Concomitant]
     Active Substance: CLOBAZAM
     Dosage: 30 MG, QD
     Dates: start: 2016
  5. CLONAZEPAM [Concomitant]
     Active Substance: CLONAZEPAM
     Indication: Seizure
     Dosage: 4 DROP, Q8H
  6. CLONAZEPAM [Concomitant]
     Active Substance: CLONAZEPAM
     Indication: Epilepsy
     Dosage: 10 MG IN THE MORNING, 5 MG IN THE AFTERNOON AND 10 MG IN THE EVENING, TID
  7. CLONAZEPAM [Concomitant]
     Active Substance: CLONAZEPAM
     Indication: Epilepsy
     Dosage: 6 DROP (1/12 MILLILITRE) 1 DOSE EVERY 8 HOUR
     Route: 048
  8. TOPIRAMATE [Concomitant]
     Active Substance: TOPIRAMATE
     Indication: Seizure
     Dosage: 2 DF, QD
  9. TOPIRAMATE [Concomitant]
     Active Substance: TOPIRAMATE
     Dosage: BID (100 MG IN THE MORNING AND 50 MG IN THE EVENING)
  10. FLUOXETINE [Concomitant]
     Active Substance: FLUOXETINE HYDROCHLORIDE
     Indication: Mental disorder
     Dosage: 7 ML(CC), QD
  11. FLUOXETINE [Concomitant]
     Active Substance: FLUOXETINE HYDROCHLORIDE
     Dosage: 7.5 ML 1 DOSE EVERY 1 DAY
     Route: 048
     Dates: end: 20240905
  12. KEPPRA [Concomitant]
     Active Substance: LEVETIRACETAM
     Indication: Epilepsy
     Dosage: 6CM EVERY MORNING
     Route: 048
  13. KEPPRA [Concomitant]
     Active Substance: LEVETIRACETAM
     Indication: Seizure
     Dosage: 5 DF, Q6H
  14. KEPPRA [Concomitant]
     Active Substance: LEVETIRACETAM
     Dosage: 5 DF (CC), Q8H
  15. KEPPRA [Concomitant]
     Active Substance: LEVETIRACETAM
     Dosage: 5 ML(CC), Q8H
  16. AMBROXOL [Concomitant]
     Active Substance: AMBROXOL
     Indication: Product used for unknown indication
     Dosage: UNK
  17. MIDAZOLAM [Concomitant]
     Active Substance: MIDAZOLAM
     Indication: Product used for unknown indication
     Dosage: 4MG/QD
     Route: 042
  18. LACOSAMIDE [Concomitant]
     Active Substance: LACOSAMIDE
     Indication: Product used for unknown indication
     Dosage: 50MG IN THE MORNING AND 100MG AT NIGHT

REACTIONS (34)
  - Death [Fatal]
  - Seizure [Recovered/Resolved]
  - Aspiration [Not Recovered/Not Resolved]
  - Seizure [Not Recovered/Not Resolved]
  - Aspiration [Unknown]
  - Seizure [Not Recovered/Not Resolved]
  - Seizure [Not Recovered/Not Resolved]
  - Muscle rigidity [Recovered/Resolved]
  - Palpitations [Recovered/Resolved]
  - Tachycardia [Recovering/Resolving]
  - Myoclonus [Recovering/Resolving]
  - Aspiration [Recovered/Resolved]
  - Hypoaesthesia [Recovered/Resolved]
  - Choking [Recovered/Resolved]
  - Skin discolouration [Recovered/Resolved]
  - Cough [Recovered/Resolved]
  - Vomiting [Recovered/Resolved]
  - Pyrexia [Recovered/Resolved]
  - Myoclonic epilepsy [Recovering/Resolving]
  - Oxygen saturation decreased [Not Recovered/Not Resolved]
  - Vomiting [Not Recovered/Not Resolved]
  - Influenza [Recovered/Resolved]
  - Pharyngotonsillitis [Recovered/Resolved]
  - Ear infection [Recovered/Resolved]
  - Ear pain [Recovered/Resolved]
  - Discouragement [Recovering/Resolving]
  - Pyrexia [Recovered/Resolved]
  - Pharyngitis [Recovered/Resolved]
  - Pyrexia [Recovered/Resolved]
  - Sleep apnoea syndrome [Recovering/Resolving]
  - Pharyngitis [Recovering/Resolving]
  - Pyrexia [Recovering/Resolving]
  - Somnolence [Not Recovered/Not Resolved]
  - Lethargy [Not Recovered/Not Resolved]

NARRATIVE: CASE EVENT DATE: 20230111
